FAERS Safety Report 9087418 (Version 1)
Quarter: 2013Q1

REPORT INFORMATION
  Report Type: Report from Study
  Country: US (occurrence: US)
  Receive Date: 20130201
  Receipt Date: 20130201
  Transmission Date: 20140127
  Serious: No
  Sender: FDA-Public Use
  Company Number: US-ABBOTT-12P-163-1025146-00

PATIENT
  Sex: Female

DRUGS (2)
  1. HUMIRA [Suspect]
     Indication: ANKYLOSING SPONDYLITIS
     Dates: start: 20091006, end: 20121115
  2. HUMIRA [Suspect]
     Dates: start: 20121207

REACTIONS (2)
  - Exposure to communicable disease [Unknown]
  - Cough [Recovered/Resolved]
